FAERS Safety Report 12268417 (Version 1)
Quarter: 2016Q2

REPORT INFORMATION
  Report Type: Spontaneous
  Country: US (occurrence: US)
  Receive Date: 20160414
  Receipt Date: 20160414
  Transmission Date: 20160815
  Serious: Yes (Death)
  Sender: FDA-Public Use
  Company Number: US-ASTELLAS-2016US010291

PATIENT
  Age: 51 Year
  Sex: Male

DRUGS (1)
  1. VESICARE [Suspect]
     Active Substance: SOLIFENACIN SUCCINATE
     Indication: PRODUCT USED FOR UNKNOWN INDICATION
     Route: 065
     Dates: end: 20160315

REACTIONS (7)
  - Dry mouth [Unknown]
  - Cardiac flutter [Unknown]
  - Anxiety [Unknown]
  - Vision blurred [Unknown]
  - Completed suicide [Fatal]
  - Night sweats [Unknown]
  - Tinnitus [Unknown]

NARRATIVE: CASE EVENT DATE: 20160323
